FAERS Safety Report 7576525-7 (Version None)
Quarter: 2011Q2

REPORT INFORMATION
  Report Type: 
  Country: None (occurrence: None)
  Receive Date: 20110628
  Receipt Date: 20100116
  Transmission Date: 20111010
  Serious: Yes (Death, Other)
  Sender: FDA-Public Use
  Company Number: US-BAYER-201011219NA

PATIENT
  Age: 51 Year
  Sex: Male

DRUGS (1)
  1. TRASYLOL [Suspect]
     Indication: CORONARY ARTERY BYPASS
     Dates: start: 20020403

REACTIONS (15)
  - DEATH [None]
  - MYOCARDIAL INFARCTION [None]
  - ORGAN FAILURE [None]
  - RENAL IMPAIRMENT [None]
  - INJURY [None]
  - CARDIAC DISORDER [None]
  - ANXIETY [None]
  - DEPRESSION [None]
  - RENAL FAILURE [None]
  - RENAL INJURY [None]
  - ANHEDONIA [None]
  - UNEVALUABLE EVENT [None]
  - PAIN [None]
  - CEREBROVASCULAR ACCIDENT [None]
  - FEAR [None]
